FAERS Safety Report 21875807 (Version 1)
Quarter: 2023Q1

REPORT INFORMATION
  Report Type: Spontaneous
  Country: None (occurrence: FR)
  Receive Date: 20230118
  Receipt Date: 20230118
  Transmission Date: 20230418
  Serious: Yes (Hospitalization, Other)
  Sender: FDA-Public Use
  Company Number: FR-Oxford Pharmaceuticals, LLC-2136821

PATIENT
  Age: 81 Year
  Sex: Female

DRUGS (8)
  1. SIMVASTATIN [Suspect]
     Active Substance: SIMVASTATIN
     Indication: Dyslipidaemia
  2. PALBOCICLIB [Interacting]
     Active Substance: PALBOCICLIB
  3. LETROZOLE [Concomitant]
     Active Substance: LETROZOLE
  4. EZETIMIBE [Concomitant]
     Active Substance: EZETIMIBE
  5. APIXABAN [Concomitant]
     Active Substance: APIXABAN
  6. VENLAFAXINE [Concomitant]
     Active Substance: VENLAFAXINE HYDROCHLORIDE
  7. LEVOTHYROXINE [Concomitant]
     Active Substance: LEVOTHYROXINE
  8. ALLOPURINOL [Concomitant]
     Active Substance: ALLOPURINOL

REACTIONS (6)
  - Rhabdomyolysis [Recovered/Resolved]
  - Drug interaction [Recovered/Resolved]
  - Fall [Recovered/Resolved]
  - Dropped head syndrome [Recovered/Resolved]
  - Necrotising myositis [Recovered/Resolved]
  - Quadriparesis [Recovered/Resolved]
